FAERS Safety Report 7169803-7 (Version None)
Quarter: 2010Q4

REPORT INFORMATION
  Report Type: 
  Country: None (occurrence: None)
  Receive Date: 20101217
  Receipt Date: 20101207
  Transmission Date: 20110411
  Serious: Yes (Hospitalization)
  Sender: FDA-Public Use
  Company Number: FR-JNJFOC-20101205505

PATIENT
  Sex: Female

DRUGS (10)
  1. IXPRIM [Suspect]
     Indication: PAIN
     Route: 048
     Dates: start: 20101011, end: 20101012
  2. HEPARIN SODIUM [Suspect]
     Indication: PRODUCT USED FOR UNKNOWN INDICATION
     Route: 051
     Dates: start: 20101008, end: 20101009
  3. CALCIPARINE [Suspect]
     Indication: PRODUCT USED FOR UNKNOWN INDICATION
     Route: 051
     Dates: start: 20101009, end: 20101011
  4. PENTOXIFYLLINE [Concomitant]
     Route: 065
  5. LASIX [Concomitant]
     Route: 065
  6. DIFFU K [Concomitant]
     Route: 065
  7. NEBIVOLOL [Concomitant]
     Route: 065
  8. MACROGOL [Concomitant]
     Route: 065
  9. DOLIPRANE [Concomitant]
     Route: 065
  10. CALCIUM CHLORIDE DIHYDRATE [Concomitant]
     Route: 065

REACTIONS (2)
  - NEUTROPENIA [None]
  - THROMBOCYTOPENIA [None]
